FAERS Safety Report 4286688-7 (Version None)
Quarter: 2004Q1

REPORT INFORMATION
  Report Type: 
  Country: None (occurrence: None)
  Receive Date: 20040206
  Receipt Date: 20040127
  Transmission Date: 20041129
  Serious: Yes (Other)
  Sender: FDA-Public Use
  Company Number: FR-BRISTOL-MYERS SQUIBB COMPANY-12496691

PATIENT
  Age: 31 Year
  Sex: Female

DRUGS (2)
  1. ENDOXAN [Suspect]
     Indication: BEHCET'S SYNDROME
     Dosage: REC'D AT 7 AMENORRHEA WKS
     Route: 042
  2. CORTANCYL [Concomitant]
     Indication: BEHCET'S SYNDROME
     Route: 048

REACTIONS (2)
  - ABORTION INDUCED [None]
  - PREGNANCY [None]
